FAERS Safety Report 21396262 (Version 3)
Quarter: 2023Q1

REPORT INFORMATION
  Report Type: Spontaneous
  Country: US (occurrence: US)
  Receive Date: 20220930
  Receipt Date: 20230306
  Transmission Date: 20230418
  Serious: No
  Sender: FDA-Public Use
  Company Number: US-LEO Pharma-345714

PATIENT
  Sex: Female

DRUGS (1)
  1. ADBRY [Suspect]
     Active Substance: TRALOKINUMAB-LDRM
     Indication: Dermatitis atopic
     Route: 058
     Dates: start: 20220406

REACTIONS (7)
  - Hypoaesthesia [Unknown]
  - Dry skin [Unknown]
  - Peripheral coldness [Unknown]
  - Vitreous floaters [Not Recovered/Not Resolved]
  - Skin discolouration [Unknown]
  - Vision blurred [Unknown]
  - Sunburn [Unknown]
